FAERS Safety Report 16436939 (Version 1)
Quarter: 2019Q2

REPORT INFORMATION
  Report Type: Report from Study
  Country: US (occurrence: US)
  Receive Date: 20190614
  Receipt Date: 20190614
  Transmission Date: 20190711
  Serious: Yes (Hospitalization)
  Sender: FDA-Public Use
  Company Number: US-ACTELION-A-NJ2016-136443

PATIENT
  Age: 55 Year
  Sex: Female
  Weight: 89.34 kg

DRUGS (2)
  1. VELETRI [Suspect]
     Active Substance: EPOPROSTENOL
     Dosage: 53 MG/KG
     Route: 042
  2. VELETRI [Suspect]
     Active Substance: EPOPROSTENOL
     Indication: PULMONARY ARTERIAL HYPERTENSION
     Dosage: 3 NG/KG, PER MIN
     Route: 042
     Dates: start: 20160408

REACTIONS (22)
  - Catheter site warmth [Unknown]
  - Rash [Not Recovered/Not Resolved]
  - Catheter site discharge [Unknown]
  - Rash macular [Not Recovered/Not Resolved]
  - Pruritus [Not Recovered/Not Resolved]
  - Malaise [Unknown]
  - Vomiting [Unknown]
  - Asthenia [Unknown]
  - Device alarm issue [Unknown]
  - Device related infection [Unknown]
  - Catheter site pain [Unknown]
  - Catheter site irritation [Unknown]
  - Device occlusion [Unknown]
  - Flushing [Not Recovered/Not Resolved]
  - Catheter site infection [Recovered/Resolved]
  - Catheter site pruritus [Unknown]
  - Nausea [Unknown]
  - Seasonal allergy [Unknown]
  - Pain in extremity [Unknown]
  - Migraine [Unknown]
  - Catheter site induration [Unknown]
  - Catheter site erythema [Unknown]

NARRATIVE: CASE EVENT DATE: 20190603
